FAERS Safety Report 8953319 (Version 1)
Quarter: 2012Q4

REPORT INFORMATION
  Report Type: Report from Study
  Country: CA (occurrence: CA)
  Receive Date: 20121206
  Receipt Date: 20121206
  Transmission Date: 20130627
  Serious: Yes (Hospitalization)
  Sender: FDA-Public Use
  Company Number: CA-JNJFOC-20121113969

PATIENT
  Sex: Female
  Weight: 47.63 kg

DRUGS (2)
  1. REMICADE [Suspect]
     Indication: COLITIS ULCERATIVE
     Route: 042
     Dates: start: 201211
  2. PREDNISONE [Concomitant]
     Route: 065

REACTIONS (4)
  - Hyperhidrosis [Unknown]
  - Poor quality sleep [Unknown]
  - Anxiety [Unknown]
  - Night sweats [Unknown]
